FAERS Safety Report 5991367-1 (Version None)
Quarter: 2008Q4

REPORT INFORMATION
  Report Type: 
  Country: None (occurrence: None)
  Receive Date: 20081202
  Receipt Date: 20080128
  Transmission Date: 20090506
  Serious: Yes (Other)
  Sender: FDA-Public Use
  Company Number: WAES 0801USA05467

PATIENT
  Age: 67 Year
  Sex: Female
  Weight: 56.6996 kg

DRUGS (2)
  1. FOSAMAX [Suspect]
     Indication: OSTEOPOROSIS
     Dosage: 70 MG/WKY/PO
     Route: 048
     Dates: start: 20000101, end: 20060101
  2. HORMONES (UNSPECIFIED) [Concomitant]

REACTIONS (20)
  - CELLULITIS [None]
  - CHEST PAIN [None]
  - CORNEAL THINNING [None]
  - COUGH [None]
  - DIZZINESS [None]
  - DYSPNOEA [None]
  - GINGIVITIS [None]
  - HEADACHE [None]
  - INFECTION [None]
  - NERVE INJURY [None]
  - ORTHOPNOEA [None]
  - OSTEOMYELITIS [None]
  - OSTEONECROSIS [None]
  - OSTEOPENIA [None]
  - PALPITATIONS [None]
  - PARAESTHESIA [None]
  - PYREXIA [None]
  - STOMATITIS [None]
  - TRANSIENT ISCHAEMIC ATTACK [None]
  - VERTIGO [None]
